FAERS Safety Report 12859256 (Version 1)
Quarter: 2016Q4

REPORT INFORMATION
  Report Type: Spontaneous
  Country: US (occurrence: US)
  Receive Date: 20161018
  Receipt Date: 20161018
  Transmission Date: 20170207
  Serious: No
  Sender: FDA-Public Use
  Company Number: US-009507513-1610USA005681

PATIENT
  Age: 63 Year
  Sex: Female

DRUGS (2)
  1. CAPECITABINE. [Concomitant]
     Active Substance: CAPECITABINE
     Indication: CARCINOID TUMOUR
     Dosage: UNK
     Dates: start: 2011
  2. TEMODAR [Suspect]
     Active Substance: TEMOZOLOMIDE
     Indication: CARCINOID TUMOUR
     Dosage: UNK
     Dates: start: 2001

REACTIONS (3)
  - Blood chromogranin A [Unknown]
  - Serum serotonin increased [Unknown]
  - Off label use [Unknown]

NARRATIVE: CASE EVENT DATE: 2011
